FAERS Safety Report 8512512-X (Version None)
Quarter: 2012Q3

REPORT INFORMATION
  Report Type: 
  Country: None (occurrence: None)
  Receive Date: 20120716
  Receipt Date: 20120705
  Transmission Date: 20120928
  Serious: Yes (Death)
  Sender: FDA-Public Use
  Company Number: JP-GLAXOSMITHKLINE-B0811743A

PATIENT
  Age: 86 Year
  Sex: Female

DRUGS (4)
  1. ALKERAN [Suspect]
     Indication: MULTIPLE MYELOMA
     Dosage: 6MG PER DAY
     Route: 048
     Dates: start: 20120511, end: 20120514
  2. PREDNISOLONE [Concomitant]
     Indication: MULTIPLE MYELOMA
     Route: 048
     Dates: start: 20120511, end: 20120514
  3. FLUCONAZOLE [Concomitant]
     Dosage: 200MG PER DAY
     Route: 048
  4. FAMOTIDINE [Concomitant]
     Dosage: 20MG PER DAY
     Route: 048

REACTIONS (3)
  - PNEUMONIA [None]
  - PYREXIA [None]
  - WHITE BLOOD CELL COUNT DECREASED [None]
